FAERS Safety Report 14611894 (Version 7)
Quarter: 2019Q1

REPORT INFORMATION
  Report Type: Spontaneous
  Country: DE (occurrence: DE)
  Receive Date: 20180308
  Receipt Date: 20190215
  Transmission Date: 20190417
  Serious: Yes (Death, Other)
  Sender: FDA-Public Use
  Company Number: DE-AUROBINDO-AUR-APL-2018-011577

PATIENT

DRUGS (5)
  1. CLOPIDOGREL [Suspect]
     Active Substance: CLOPIDOGREL BISULFATE
     Indication: PRODUCT USED FOR UNKNOWN INDICATION
     Dosage: UNK
     Route: 065
  2. HEPARIN [Suspect]
     Active Substance: HEPARIN SODIUM
     Indication: PRODUCT USED FOR UNKNOWN INDICATION
     Dosage: UNK
     Route: 065
  3. ELIQUIS [Concomitant]
     Active Substance: APIXABAN
     Indication: PRODUCT USED FOR UNKNOWN INDICATION
     Dosage: 2.5 MILLIGRAM, ONCE A DAY
     Route: 048
     Dates: start: 2017
  4. APIXABAN [Suspect]
     Active Substance: APIXABAN
     Indication: EMBOLISM VENOUS
     Dosage: 2.5 MILLIGRAM, TWO TIMES A DAY (2.5 MG, BID)
     Route: 048
     Dates: start: 20170321, end: 20170427
  5. CLOPIDOGREL [Concomitant]
     Active Substance: CLOPIDOGREL BISULFATE
     Indication: PRODUCT USED FOR UNKNOWN INDICATION
     Dosage: UNK
     Route: 048

REACTIONS (7)
  - Chronic obstructive pulmonary disease [Fatal]
  - Haemorrhage [Unknown]
  - Ear haemorrhage [Unknown]
  - Prescribed underdose [Unknown]
  - Infective exacerbation of chronic obstructive airways disease [Fatal]
  - Spontaneous haematoma [Unknown]
  - Epistaxis [Unknown]

NARRATIVE: CASE EVENT DATE: 20170401
